FAERS Safety Report 6362017-X (Version None)
Quarter: 2009Q3

REPORT INFORMATION
  Report Type: 
  Country: None (occurrence: None)
  Receive Date: 20090918
  Receipt Date: 20090908
  Transmission Date: 20100115
  Serious: Yes (Hospitalization)
  Sender: FDA-Public Use
  Company Number: DE-ABBOTT-09P-062-0596238-00

PATIENT
  Sex: Male
  Weight: 104 kg

DRUGS (13)
  1. HUMIRA [Suspect]
     Indication: PSORIATIC ARTHROPATHY
     Dates: start: 20060421, end: 20090615
  2. ARCOXIA [Concomitant]
     Indication: DRUG USE FOR UNKNOWN INDICATION
  3. NOVALGIN [Concomitant]
     Indication: DRUG USE FOR UNKNOWN INDICATION
  4. OXYGESIC [Concomitant]
     Indication: DRUG USE FOR UNKNOWN INDICATION
  5. DECORTIN H [Concomitant]
     Indication: PSORIATIC ARTHROPATHY
     Route: 048
     Dates: start: 20030101
  6. GABRILEN [Concomitant]
     Indication: DRUG USE FOR UNKNOWN INDICATION
  7. OMEPRAZOL [Concomitant]
     Indication: DRUG USE FOR UNKNOWN INDICATION
  8. FELODIPINE [Concomitant]
     Indication: DRUG USE FOR UNKNOWN INDICATION
  9. CALCIUM [Concomitant]
     Indication: DRUG USE FOR UNKNOWN INDICATION
  10. ALLOPURINOL [Concomitant]
     Indication: DRUG USE FOR UNKNOWN INDICATION
  11. HYDROCHLOROTHIAZIDE [Concomitant]
     Indication: DRUG USE FOR UNKNOWN INDICATION
  12. FRAXIPARIN [Concomitant]
     Indication: DRUG USE FOR UNKNOWN INDICATION
     Route: 058
  13. METHOTREXATE SODIUM [Concomitant]
     Indication: PSORIATIC ARTHROPATHY
     Route: 058
     Dates: start: 20060421, end: 20090615

REACTIONS (8)
  - ARTHRALGIA [None]
  - BACK PAIN [None]
  - C-REACTIVE PROTEIN INCREASED [None]
  - CHILLS [None]
  - DEVICE RELATED INFECTION [None]
  - JOINT EFFUSION [None]
  - PYREXIA [None]
  - SEPTIC ARTHRITIS STAPHYLOCOCCAL [None]
